FAERS Safety Report 9639692 (Version 2)
Quarter: 2013Q4

REPORT INFORMATION
  Report Type: Spontaneous
  Country: GB (occurrence: GB)
  Receive Date: 20131023
  Receipt Date: 20131023
  Transmission Date: 20140711
  Serious: Yes (Other)
  Sender: FDA-Public Use
  Company Number: GB-009507513-1308GBR010523

PATIENT
  Age: 48 Year
  Sex: Female
  Weight: 63.5 kg

DRUGS (3)
  1. IMPLANON [Suspect]
     Indication: CONTRACEPTION
     Dosage: ONE EVERY THREE YEARS
     Route: 058
     Dates: start: 2007
  2. IMPLANON [Suspect]
     Dosage: UNKNOWN, IN THEIR LEFT ARM
     Route: 059
  3. BISOPROLOL [Concomitant]
     Dosage: UNKNOWN

REACTIONS (3)
  - Device difficult to use [Unknown]
  - Incorrect drug administration duration [Unknown]
  - Overdose [Unknown]
